FAERS Safety Report 24057241 (Version 1)
Quarter: 2024Q3

REPORT INFORMATION
  Report Type: Spontaneous
  Country: US (occurrence: US)
  Receive Date: 20240706
  Receipt Date: 20240706
  Transmission Date: 20241016
  Serious: Yes (Death, Other)
  Sender: DR REDDYS
  Company Number: US-DRL-USA-LIT/USA/24/0009684

PATIENT
  Age: 72 Year
  Sex: Female

DRUGS (2)
  1. GEMCITABINE [Suspect]
     Active Substance: GEMCITABINE
     Indication: Pancreatic carcinoma stage I
  2. ABRAXANE [Suspect]
     Active Substance: PACLITAXEL
     Indication: Pancreatic carcinoma stage I

REACTIONS (9)
  - Gastrointestinal injury [Fatal]
  - Neutropenia [Fatal]
  - Septic shock [Fatal]
  - Encephalopathy [Fatal]
  - Gastritis bacterial [Fatal]
  - Hypoperfusion [Fatal]
  - Condition aggravated [Fatal]
  - Lactic acidosis [Fatal]
  - Systemic bacterial infection [Fatal]
